FAERS Safety Report 6844703-8 (Version None)
Quarter: 2010Q3

REPORT INFORMATION
  Report Type: 
  Country: None (occurrence: None)
  Receive Date: 20100715
  Receipt Date: 20100708
  Transmission Date: 20110219
  Serious: Yes (Hospitalization, Other)
  Sender: FDA-Public Use
  Company Number: US-BAYER-201027629NA

PATIENT
  Age: 35 Year
  Sex: Female

DRUGS (2)
  1. YAZ [Suspect]
     Indication: ORAL CONTRACEPTION
     Route: 048
     Dates: start: 20100511, end: 20100626
  2. PLAN B [Concomitant]
     Indication: UNEVALUABLE EVENT

REACTIONS (8)
  - CEREBROVASCULAR ACCIDENT [None]
  - DYSARTHRIA [None]
  - HEADACHE [None]
  - HYPERCOAGULATION [None]
  - NAUSEA [None]
  - PHOTOPHOBIA [None]
  - SOMNOLENCE [None]
  - VISION BLURRED [None]
